FAERS Safety Report 7034779-X (Version None)
Quarter: 2010Q4

REPORT INFORMATION
  Report Type: 
  Country: None (occurrence: None)
  Receive Date: 20101008
  Receipt Date: 20101004
  Transmission Date: 20110411
  Serious: Yes (Death)
  Sender: FDA-Public Use
  Company Number: PHHY2010MX27866

PATIENT
  Sex: Female

DRUGS (1)
  1. FEMARA [Suspect]
     Indication: BREAST CANCER
     Dosage: 1 TABLET (2.5 MG) PER DAY
     Route: 048
     Dates: start: 20050801

REACTIONS (2)
  - EATING DISORDER [None]
  - MALIGNANT NEOPLASM PROGRESSION [None]
